FAERS Safety Report 4658698-9 (Version None)
Quarter: 2005Q2

REPORT INFORMATION
  Report Type: 
  Country: None (occurrence: None)
  Receive Date: 20050509
  Receipt Date: 20050421
  Transmission Date: 20051028
  Serious: Yes (Hospitalization)
  Sender: FDA-Public Use
  Company Number: DSA_26341_2005

PATIENT
  Age: 43 Year
  Sex: Male

DRUGS (2)
  1. TAVOR [Suspect]
     Dosage: DF ONCE PO
     Route: 048
     Dates: start: 20050419, end: 20050419
  2. CANNABIS [Suspect]
     Dosage: DF ONCE
     Dates: start: 20050419, end: 20050419

REACTIONS (3)
  - BOWEL SOUNDS ABNORMAL [None]
  - COMA [None]
  - INTENTIONAL MISUSE [None]
